FAERS Safety Report 5335343-0 (Version None)
Quarter: 2007Q2

REPORT INFORMATION
  Report Type: 
  Country: None (occurrence: None)
  Receive Date: 20070525
  Receipt Date: 20070516
  Transmission Date: 20071010
  Serious: Yes (Other)
  Sender: FDA-Public Use
  Company Number: BR-PFIZER INC-2007039186

PATIENT
  Sex: Female

DRUGS (1)
  1. CELEBRA [Suspect]
     Indication: BUNION OPERATION
     Route: 048
     Dates: start: 20070428, end: 20070501

REACTIONS (6)
  - COUGH [None]
  - MOUTH INJURY [None]
  - NAUSEA [None]
  - ORAL HERPES [None]
  - PRURITUS [None]
  - THROAT IRRITATION [None]
